FAERS Safety Report 23370687 (Version 2)
Quarter: 2024Q3

REPORT INFORMATION
  Report Type: Spontaneous
  Country: US (occurrence: US)
  Receive Date: 20240105
  Receipt Date: 20240923
  Transmission Date: 20241016
  Serious: No
  Sender: SANOFI AVENTIS
  Company Number: US-SA-SAC20240102000125

PATIENT
  Age: 34 Year
  Sex: Male
  Weight: 81 kg

DRUGS (3)
  1. DUPIXENT [Suspect]
     Active Substance: DUPILUMAB
     Indication: Sinus polyp degeneration
     Dosage: 300 MG, QOW
     Route: 058
     Dates: start: 20230912
  2. DUPIXENT [Suspect]
     Active Substance: DUPILUMAB
     Indication: Chronic rhinosinusitis with nasal polyps
  3. XHANCE [Concomitant]
     Active Substance: FLUTICASONE PROPIONATE

REACTIONS (7)
  - Sinus headache [Unknown]
  - Condition aggravated [Unknown]
  - Paranasal sinus discomfort [Unknown]
  - Condition aggravated [Unknown]
  - Balance disorder [Unknown]
  - Migraine [Recovering/Resolving]
  - Dizziness [Unknown]

NARRATIVE: CASE EVENT DATE: 20230101
